FAERS Safety Report 21401656 (Version 2)
Quarter: 2022Q4

REPORT INFORMATION
  Report Type: Report from Study
  Country: FR (occurrence: FR)
  Receive Date: 20221003
  Receipt Date: 20221006
  Transmission Date: 20230113
  Serious: Yes (Other)
  Sender: FDA-Public Use
  Company Number: FR-PFIZER INC-202201180493

PATIENT
  Age: 62 Year
  Sex: Male

DRUGS (5)
  1. TACROLIMUS [Suspect]
     Active Substance: TACROLIMUS
     Indication: Renal transplant
     Dosage: 0.5 MG, EVERY 12 HOURS
     Route: 065
  2. MYCOPHENOLATE MOFETIL [Suspect]
     Active Substance: MYCOPHENOLATE MOFETIL
     Indication: Renal transplant
     Route: 065
  3. COMIRNATY [Concomitant]
     Active Substance: TOZINAMERAN
     Indication: COVID-19 immunisation
     Dosage: UNK UNK, TOTAL DOSE (1ST DOSE)
     Route: 065
     Dates: start: 20210121, end: 20210121
  4. COMIRNATY [Concomitant]
     Active Substance: TOZINAMERAN
     Dosage: UNK UNK, TOTAL DOSE (2ND DOSE)
     Route: 065
     Dates: start: 20210218, end: 20210218
  5. COMIRNATY [Concomitant]
     Active Substance: TOZINAMERAN
     Dosage: UNK UNK, TOTAL DOSE (3RD DOSE)
     Route: 065
     Dates: start: 20210525, end: 20210525

REACTIONS (2)
  - Secondary immunodeficiency [Unknown]
  - Seroconversion test negative [Unknown]

NARRATIVE: CASE EVENT DATE: 20210101
